FAERS Safety Report 5400343-9 (Version None)
Quarter: 2007Q3

REPORT INFORMATION
  Report Type: 
  Country: None (occurrence: None)
  Receive Date: 20070730
  Receipt Date: 20070723
  Transmission Date: 20080115
  Serious: Yes (Hospitalization, Disabling, Other)
  Sender: FDA-Public Use
  Company Number: A0665822A

PATIENT
  Age: 56 Year
  Sex: Female

DRUGS (4)
  1. ADVAIR DISKUS 100/50 [Suspect]
     Indication: ASTHMA
     Dosage: 2PUFF TWICE PER DAY
     Route: 055
     Dates: start: 20060101
  2. ADVAIR DISKUS 100/50 [Suspect]
     Dosage: 1PUFF TWICE PER DAY
     Route: 055
     Dates: end: 20070601
  3. LASIX [Concomitant]
  4. POTASSIUM CHLORIDE [Concomitant]

REACTIONS (12)
  - ASTHMA [None]
  - BLOOD POTASSIUM DECREASED [None]
  - BLOOD PRESSURE INCREASED [None]
  - DIZZINESS [None]
  - DRUG INEFFECTIVE [None]
  - DYSPNOEA [None]
  - POST PROCEDURAL HYPOTHYROIDISM [None]
  - THROAT TIGHTNESS [None]
  - THYROID CANCER [None]
  - THYROID DISORDER [None]
  - THYROID NEOPLASM [None]
  - THYROIDECTOMY [None]
